FAERS Safety Report 4467089-5 (Version None)
Quarter: 2004Q4

REPORT INFORMATION
  Report Type: 
  Country: None (occurrence: None)
  Receive Date: 20041006
  Receipt Date: 20040713
  Transmission Date: 20050328
  Serious: Yes (Hospitalization, Other)
  Sender: FDA-Public Use
  Company Number: PHEH2004US07608

PATIENT
  Sex: Male

DRUGS (2)
  1. TEGRETOL [Suspect]
     Indication: CONVULSION
     Route: 048
     Dates: start: 19850101
  2. TEGRETOL [Suspect]
     Route: 048

REACTIONS (21)
  - ABNORMAL BEHAVIOUR [None]
  - AFFECT LABILITY [None]
  - AMNESIA [None]
  - APATHY [None]
  - CATATONIA [None]
  - CONVULSION [None]
  - DEPENDENT PERSONALITY DISORDER [None]
  - DRUG WITHDRAWAL CONVULSIONS [None]
  - EMOTIONAL DISORDER [None]
  - EUPHORIC MOOD [None]
  - FALL [None]
  - FEELING ABNORMAL [None]
  - INJURY [None]
  - LOSS OF LIBIDO [None]
  - PARANOIA [None]
  - SENSORY DISTURBANCE [None]
  - SENSORY LEVEL ABNORMAL [None]
  - SLEEP DISORDER [None]
  - SLEEP WALKING [None]
  - TREATMENT NONCOMPLIANCE [None]
  - UNEXPECTED THERAPEUTIC DRUG EFFECT [None]
